FAERS Safety Report 7683055-0 (Version None)
Quarter: 2011Q3

REPORT INFORMATION
  Report Type: 
  Country: None (occurrence: None)
  Receive Date: 20110815
  Receipt Date: 20110804
  Transmission Date: 20111222
  Serious: Yes (Other)
  Sender: FDA-Public Use
  Company Number: CA-ASTRAZENECA-2011SE33315

PATIENT
  Age: 72 Year
  Sex: Female

DRUGS (10)
  1. ATORVASTATIN [Concomitant]
  2. POTASSIUM CHLORIDE [Concomitant]
  3. ARIMIDEX [Suspect]
     Route: 048
  4. CARVEDILOL [Concomitant]
  5. ENALAPRIL MALEATE [Concomitant]
  6. ARIMIDEX [Suspect]
     Indication: BREAST CANCER
     Route: 048
     Dates: start: 20100101
  7. PANTOPRAZOLE [Concomitant]
  8. ASPIRIN [Concomitant]
  9. FUROSEMIDE [Concomitant]
  10. SYNTHROID [Concomitant]

REACTIONS (2)
  - THROAT IRRITATION [None]
  - ORAL INFECTION [None]
